FAERS Safety Report 9742094 (Version 4)
Quarter: 2015Q2

REPORT INFORMATION
  Report Type: Spontaneous
  Country: US (occurrence: US)
  Receive Date: 20131210
  Receipt Date: 20150511
  Transmission Date: 20150821
  Serious: Yes (Hospitalization, Other)
  Sender: FDA-Public Use
  Company Number: US-BAYER-2013-148482

PATIENT
  Age: 30 Year
  Sex: Female
  Weight: 54.42 kg

DRUGS (1)
  1. MIRENA [Suspect]
     Active Substance: LEVONORGESTREL
     Indication: CONTRACEPTION
     Dosage: 20 MCG/24HR, CONT
     Route: 015
     Dates: start: 20080429, end: 20120619

REACTIONS (16)
  - Anaemia [None]
  - Fear [None]
  - Drug ineffective [None]
  - Salpingectomy [None]
  - Uterine injury [None]
  - Abdominal pain lower [None]
  - Pelvic pain [None]
  - Abortion spontaneous [None]
  - Uterine perforation [None]
  - Injury [None]
  - Device difficult to use [None]
  - Anxiety [None]
  - Ectopic pregnancy with contraceptive device [None]
  - Scar [None]
  - Ruptured ectopic pregnancy [None]
  - Genital haemorrhage [None]

NARRATIVE: CASE EVENT DATE: 20120619
